FAERS Safety Report 13662182 (Version 1)
Quarter: 2017Q2

REPORT INFORMATION
  Report Type: Spontaneous
  Country: US (occurrence: US)
  Receive Date: 20170616
  Receipt Date: 20170616
  Transmission Date: 20170830
  Serious: No
  Sender: FDA-Public Use
  Company Number: US-009507513-1706USA003674

PATIENT
  Age: 77 Year
  Sex: Male

DRUGS (2)
  1. INTRON A [Suspect]
     Active Substance: INTERFERON ALFA-2B
     Dosage: (STRENGTH: 18MMU/3.8ML), TID
     Route: 042
     Dates: end: 201703
  2. INTRON A [Suspect]
     Active Substance: INTERFERON ALFA-2B
     Dosage: 2.8 MILLION IU, 3 TIMES PER WEEK (STRENGTH: 18MMU/3.8ML)
     Route: 058
     Dates: start: 20170320

REACTIONS (1)
  - Hypersomnia [Unknown]

NARRATIVE: CASE EVENT DATE: 20170320
